FAERS Safety Report 25653228 (Version 1)
Quarter: 2025Q3

REPORT INFORMATION
  Report Type: Spontaneous
  Country: MX (occurrence: MX)
  Receive Date: 20250807
  Receipt Date: 20250807
  Transmission Date: 20251021
  Serious: Yes (Life-Threatening, Hospitalization, Other)
  Sender: NOVITIUM PHARMA
  Company Number: MX-NOVITIUMPHARMA-2025MXNVP01942

PATIENT
  Age: 62 Year
  Sex: Male

DRUGS (10)
  1. PREDNISONE [Suspect]
     Active Substance: PREDNISONE
     Indication: Antisynthetase syndrome
  2. PREDNISONE [Suspect]
     Active Substance: PREDNISONE
     Indication: Idiopathic interstitial pneumonia
  3. RITUXIMAB [Concomitant]
     Active Substance: RITUXIMAB
  4. RITUXIMAB [Concomitant]
     Active Substance: RITUXIMAB
     Indication: Idiopathic interstitial pneumonia
  5. METHOTREXATE [Concomitant]
     Active Substance: METHOTREXATE
  6. METHOTREXATE [Concomitant]
     Active Substance: METHOTREXATE
     Indication: Idiopathic interstitial pneumonia
  7. LEFLUNOMIDE [Concomitant]
     Active Substance: LEFLUNOMIDE
  8. LEFLUNOMIDE [Concomitant]
     Active Substance: LEFLUNOMIDE
     Indication: Idiopathic interstitial pneumonia
  9. NINTEDANIB [Concomitant]
     Active Substance: NINTEDANIB
  10. NINTEDANIB [Concomitant]
     Active Substance: NINTEDANIB
     Indication: Idiopathic interstitial pneumonia

REACTIONS (1)
  - Lung adenocarcinoma stage IV [Unknown]
